FAERS Safety Report 16030517 (Version 1)
Quarter: 2019Q1

REPORT INFORMATION
  Report Type: Spontaneous
  Country: US (occurrence: US)
  Receive Date: 20190304
  Receipt Date: 20190304
  Transmission Date: 20190418
  Serious: No
  Sender: FDA-Public Use
  Company Number: PHHY2019US048627

PATIENT
  Age: 80 Year
  Sex: Male

DRUGS (1)
  1. DICLOFENAC SODIUM. [Suspect]
     Active Substance: DICLOFENAC SODIUM
     Indication: PRODUCT USED FOR UNKNOWN INDICATION
     Dosage: UNK UNK, QID
     Route: 065
     Dates: start: 20190215

REACTIONS (2)
  - Wrong technique in product usage process [Unknown]
  - Inappropriate schedule of product administration [Unknown]
